FAERS Safety Report 8062481-4 (Version None)
Quarter: 2012Q1

REPORT INFORMATION
  Report Type: 
  Country: None (occurrence: None)
  Receive Date: 20120123
  Receipt Date: 20120113
  Transmission Date: 20120608
  Serious: Yes (Other)
  Sender: FDA-Public Use
  Company Number: US-JNJFOC-20120106553

PATIENT
  Age: 46 Year
  Sex: Male
  Weight: 90.72 kg

DRUGS (1)
  1. VISINE-A [Suspect]
     Indication: FOREIGN BODY SENSATION IN EYES
     Dosage: TWO DROPS THEN ONE DROP IN EACH EYE
     Route: 047
     Dates: start: 20120112, end: 20120112

REACTIONS (6)
  - PRODUCT QUALITY ISSUE [None]
  - EYE IRRITATION [None]
  - EYE SWELLING [None]
  - VISION BLURRED [None]
  - INAPPROPRIATE SCHEDULE OF DRUG ADMINISTRATION [None]
  - OCULAR HYPERAEMIA [None]
